FAERS Safety Report 5264388-4 (Version None)
Quarter: 2007Q1

REPORT INFORMATION
  Report Type: 
  Country: None (occurrence: None)
  Receive Date: 20070309
  Receipt Date: 20070306
  Transmission Date: 20070707
  Serious: Yes (Other)
  Sender: FDA-Public Use
  Company Number: S07-USA-01048-01

PATIENT
  Age: 68 Year
  Sex: Female

DRUGS (1)
  1. THYROLAR-2 [Suspect]
     Indication: HYPOTHYROIDISM
     Dosage: 1 TABLET QD PO
     Route: 048
     Dates: start: 20061001

REACTIONS (2)
  - DEAFNESS [None]
  - MIDDLE EAR EFFUSION [None]
